FAERS Safety Report 5226773-6 (Version None)
Quarter: 2007Q1

REPORT INFORMATION
  Report Type: 
  Country: None (occurrence: None)
  Receive Date: 20070130
  Receipt Date: 20070127
  Transmission Date: 20070707
  Serious: Yes (Death)
  Sender: FDA-Public Use
  Company Number: 232968

PATIENT
  Age: 56 Year
  Sex: Male

DRUGS (3)
  1. METALYSE [Suspect]
     Indication: MYOCARDIAL INFARCTION
     Dates: start: 20061112
  2. DOPAMINE (DOPAMINE HYDROCHLORIDE) [Concomitant]
  3. TIROFIBAN (TIROFIBAN HYDROCHLORIDE) [Concomitant]

REACTIONS (1)
  - DEATH [None]
